FAERS Safety Report 23030070 (Version 1)
Quarter: 2023Q4

REPORT INFORMATION
  Report Type: Report from Study
  Country: IT (occurrence: IT)
  Receive Date: 20231005
  Receipt Date: 20231005
  Transmission Date: 20240110
  Serious: Yes (Other)
  Sender: FDA-Public Use
  Company Number: None

PATIENT
  Age: 65 Year
  Sex: Female

DRUGS (3)
  1. CARBOPLATIN [Suspect]
     Active Substance: CARBOPLATIN
     Indication: Ovarian cancer
     Dosage: FREQUENCY OF ADMINISTRATION: CYCLICAL ROUTE OF ADMINISTRATION: INTRAVENOUS
     Dates: start: 20230811, end: 20230811
  2. LERCANIDIPINE [Concomitant]
     Active Substance: LERCANIDIPINE
     Indication: Essential hypertension
     Dosage: DOSAGE: 10 UNIT OF MEASUREMENT: MILLIGRAMS ROUTE OF ADMINISTRATION: ORAL
  3. BISOPROLOL FUMARATE [Concomitant]
     Active Substance: BISOPROLOL FUMARATE
     Indication: Essential hypertension
     Dosage: ROUTE OF ADMINISTRATION: ORAL

REACTIONS (1)
  - Infusion related reaction [Recovered/Resolved]

NARRATIVE: CASE EVENT DATE: 20230811
